FAERS Safety Report 4817861-4 (Version None)
Quarter: 2005Q4

REPORT INFORMATION
  Report Type: 
  Country: None (occurrence: None)
  Receive Date: 20051031
  Receipt Date: 20051031
  Transmission Date: 20060501
  Serious: Yes (Hospitalization)
  Sender: FDA-Public Use
  Company Number: None

PATIENT
  Age: 77 Year
  Sex: Male
  Weight: 73.4827 kg

DRUGS (1)
  1. SERTRALINE HCL [Suspect]
     Dosage: 150 MG PO DAILY
     Route: 048
     Dates: start: 20050714, end: 20050722

REACTIONS (3)
  - HYPONATRAEMIA [None]
  - INAPPROPRIATE ANTIDIURETIC HORMONE SECRETION [None]
  - MENTAL STATUS CHANGES [None]
